FAERS Safety Report 22052654 (Version 1)
Quarter: 2023Q1

REPORT INFORMATION
  Report Type: Spontaneous
  Country: US (occurrence: None)
  Receive Date: 20230302
  Receipt Date: 20230302
  Transmission Date: 20230417
  Serious: Yes (Death, Life-Threatening, Hospitalization, Other)
  Sender: FDA-Public Use
  Company Number: US-MLMSERVICE-20230209-4095480-1

PATIENT
  Age: 71 Year
  Sex: Female

DRUGS (1)
  1. ALLOPURINOL [Suspect]
     Active Substance: ALLOPURINOL
     Indication: Gout
     Dosage: UNKNOWN
     Route: 065

REACTIONS (4)
  - Haemorrhage intracranial [Fatal]
  - Encephalopathy [Recovering/Resolving]
  - Cerebral infarction [Unknown]
  - Drug reaction with eosinophilia and systemic symptoms [Recovered/Resolved]
